FAERS Safety Report 6561909-6 (Version None)
Quarter: 2010Q1

REPORT INFORMATION
  Report Type: 
  Country: None (occurrence: None)
  Receive Date: 20100130
  Receipt Date: 20091031
  Transmission Date: 20100710
  Serious: No
  Sender: FDA-Public Use
  Company Number: US-ABBOTT-09P-163-0606067-00

PATIENT
  Sex: Female
  Weight: 105.33 kg

DRUGS (7)
  1. HUMIRA [Suspect]
     Indication: CROHN'S DISEASE
     Dosage: DAY 1
  2. PREDNISONE [Concomitant]
     Indication: DRUG USE FOR UNKNOWN INDICATION
  3. PENTASA [Concomitant]
     Indication: DRUG USE FOR UNKNOWN INDICATION
  4. JANUVIA [Concomitant]
     Indication: DRUG USE FOR UNKNOWN INDICATION
  5. LEVEMIR [Concomitant]
     Indication: DRUG USE FOR UNKNOWN INDICATION
  6. AZASAN [Concomitant]
     Indication: DRUG USE FOR UNKNOWN INDICATION
  7. TOPICAL NITROBID [Concomitant]
     Indication: DRUG USE FOR UNKNOWN INDICATION
     Route: 054

REACTIONS (2)
  - FEELING ABNORMAL [None]
  - MUSCULAR WEAKNESS [None]
